FAERS Safety Report 22227208 (Version 1)
Quarter: 2023Q2

REPORT INFORMATION
  Report Type: Spontaneous
  Country: CN (occurrence: CN)
  Receive Date: 20230419
  Receipt Date: 20230419
  Transmission Date: 20230721
  Serious: Yes (Death, Life-Threatening, Hospitalization)
  Sender: FDA-Public Use
  Company Number: CN-ROCHE-3328158

PATIENT
  Age: 66 Year
  Sex: Male
  Weight: 50 kg

DRUGS (39)
  1. CAPECITABINE [Suspect]
     Active Substance: CAPECITABINE
     Indication: Colorectal cancer metastatic
     Dosage: CYCLE 1
     Route: 048
     Dates: start: 20211213
  2. CAPECITABINE [Suspect]
     Active Substance: CAPECITABINE
     Indication: Colorectal cancer metastatic
     Dosage: DAY 1 TO DAY 14 (D1-D14) OF EACH CYCLE, (500MG)
     Route: 048
     Dates: start: 20220105, end: 20220119
  3. CAPECITABINE [Suspect]
     Active Substance: CAPECITABINE
     Indication: Colorectal cancer metastatic
     Dosage: DAY 1 TO DAY 14 (D1-D14) OF EACH CYCLE, (500MG)
     Route: 048
     Dates: start: 20220129, end: 20220212
  4. CAPECITABINE [Suspect]
     Active Substance: CAPECITABINE
     Indication: Colorectal cancer metastatic
     Dosage: DAY 1 TO DAY 14 (D1-D14) OF EACH CYCLE, (500MG)
     Route: 048
     Dates: start: 20220218, end: 20220304
  5. CAPECITABINE [Suspect]
     Active Substance: CAPECITABINE
     Indication: Colorectal cancer metastatic
     Dosage: DAY 1 TO DAY 14 (D1-D14) OF EACH CYCLE, (500MG)
     Route: 048
     Dates: start: 20220501, end: 20220514
  6. CAPECITABINE [Suspect]
     Active Substance: CAPECITABINE
     Indication: Colorectal cancer metastatic
     Dosage: DAY 1 TO DAY 14 (D1-D14) OF EACH CYCLE, (500MG)
     Route: 048
     Dates: start: 20220523, end: 20220607
  7. CAPECITABINE [Suspect]
     Active Substance: CAPECITABINE
     Indication: Colorectal cancer metastatic
     Dosage: DAY 1 TO DAY 14 (D1-D14) OF EACH CYCLE, (500MG)
     Route: 048
     Dates: start: 20220630, end: 20220716
  8. CAPECITABINE [Suspect]
     Active Substance: CAPECITABINE
     Indication: Colorectal cancer metastatic
     Route: 048
     Dates: start: 20220722, end: 20220805
  9. CAPECITABINE [Suspect]
     Active Substance: CAPECITABINE
     Indication: Colorectal cancer metastatic
     Dosage: DAY 1 TO DAY 14 (D1-D14) OF EACH CYCLE, (500MG)
     Route: 048
     Dates: start: 20220809, end: 20220823
  10. CAPECITABINE [Suspect]
     Active Substance: CAPECITABINE
     Indication: Colorectal cancer metastatic
     Dosage: DAY 1 TO DAY 14 (D1-D14) OF EACH CYCLE, (500MG)
     Route: 048
     Dates: start: 20220830, end: 20220913
  11. CAPECITABINE [Suspect]
     Active Substance: CAPECITABINE
     Indication: Colorectal cancer metastatic
     Dosage: DAY 1 TO DAY 14 (D1-D14) OF EACH CYCLE, (500MG)
     Route: 048
     Dates: start: 20220922, end: 20221006
  12. CAPECITABINE [Suspect]
     Active Substance: CAPECITABINE
     Indication: Colorectal cancer metastatic
     Dosage: DAY 1 TO DAY 14 (D1-D14) OF EACH CYCLE, (500MG)
     Route: 048
     Dates: start: 20221014, end: 20221028
  13. CAPECITABINE [Suspect]
     Active Substance: CAPECITABINE
     Indication: Colorectal cancer metastatic
     Dosage: DAY 1 TO DAY 14 (D1-D14) OF EACH CYCLE, (500MG)
     Route: 048
     Dates: start: 20221103, end: 20221117
  14. CAPECITABINE [Suspect]
     Active Substance: CAPECITABINE
     Indication: Colorectal cancer metastatic
     Dosage: DAY 1 TO DAY 14 (D1-D14) OF EACH CYCLE, (500MG)
     Route: 048
     Dates: start: 20221125, end: 20221209
  15. CAPECITABINE [Suspect]
     Active Substance: CAPECITABINE
     Indication: Colorectal cancer metastatic
     Dosage: DAY 1 TO DAY 14 (D1-D14) OF EACH CYCLE, (500MG)
     Route: 048
     Dates: start: 20221216, end: 20221230
  16. CAPECITABINE [Suspect]
     Active Substance: CAPECITABINE
     Indication: Colorectal cancer metastatic
     Dosage: DAY 1 TO DAY 14 (D1-D14) OF EACH CYCLE, (500MG)
     Route: 048
     Dates: start: 20230203, end: 20230217
  17. BEVACIZUMAB [Suspect]
     Active Substance: BEVACIZUMAB
     Indication: Colorectal cancer metastatic
     Dosage: INTRAVENOUS DRIP
     Route: 042
     Dates: start: 20220105, end: 20220119
  18. BEVACIZUMAB [Suspect]
     Active Substance: BEVACIZUMAB
     Indication: Colorectal cancer metastatic
     Dosage: INTRAVENOUS DRIP
     Route: 042
     Dates: start: 20220129, end: 20220212
  19. BEVACIZUMAB [Suspect]
     Active Substance: BEVACIZUMAB
     Indication: Colorectal cancer metastatic
     Dosage: INTRAVENOUS DRIP
     Route: 042
     Dates: start: 20220218, end: 20220304
  20. BEVACIZUMAB [Suspect]
     Active Substance: BEVACIZUMAB
     Indication: Colorectal cancer metastatic
     Dosage: INTRAVENOUS DRIP
     Route: 042
     Dates: start: 20220501, end: 20220514
  21. BEVACIZUMAB [Suspect]
     Active Substance: BEVACIZUMAB
     Indication: Colorectal cancer metastatic
     Dosage: INTRAVENOUS DRIP
     Route: 042
     Dates: start: 20220523, end: 20220607
  22. BEVACIZUMAB [Suspect]
     Active Substance: BEVACIZUMAB
     Indication: Colorectal cancer metastatic
     Dosage: INTRAVENOUS DRIP
     Route: 042
     Dates: start: 20220630, end: 20220716
  23. BEVACIZUMAB [Suspect]
     Active Substance: BEVACIZUMAB
     Indication: Colorectal cancer metastatic
     Dosage: INTRAVENOUS DRIP
     Route: 042
     Dates: start: 20220722, end: 20220805
  24. BEVACIZUMAB [Suspect]
     Active Substance: BEVACIZUMAB
     Indication: Colorectal cancer metastatic
     Dosage: INTRAVENOUS DRIP
     Route: 042
     Dates: start: 20220809, end: 20220823
  25. BEVACIZUMAB [Suspect]
     Active Substance: BEVACIZUMAB
     Indication: Colorectal cancer metastatic
     Dosage: INTRAVENOUS DRIP
     Route: 042
     Dates: start: 20220830, end: 20220913
  26. BEVACIZUMAB [Suspect]
     Active Substance: BEVACIZUMAB
     Indication: Colorectal cancer metastatic
     Dosage: INTRAVENOUS DRIP
     Route: 042
     Dates: start: 20220922, end: 20221006
  27. BEVACIZUMAB [Suspect]
     Active Substance: BEVACIZUMAB
     Indication: Colorectal cancer metastatic
     Dosage: INTRAVENOUS DRIP
     Route: 042
     Dates: start: 20221014, end: 20221028
  28. BEVACIZUMAB [Suspect]
     Active Substance: BEVACIZUMAB
     Indication: Colorectal cancer metastatic
     Dosage: INTRAVENOUS DRIP
     Route: 042
     Dates: start: 20221103, end: 20221117
  29. BEVACIZUMAB [Suspect]
     Active Substance: BEVACIZUMAB
     Indication: Colorectal cancer metastatic
     Dosage: INTRAVENOUS DRIP
     Route: 042
     Dates: start: 20221125, end: 20221209
  30. BEVACIZUMAB [Suspect]
     Active Substance: BEVACIZUMAB
     Indication: Colorectal cancer metastatic
     Dosage: INTRAVENOUS DRIP
     Route: 042
     Dates: start: 20221216, end: 20221230
  31. BEVACIZUMAB [Suspect]
     Active Substance: BEVACIZUMAB
     Indication: Colorectal cancer metastatic
     Dosage: INTRAVENOUS DRIP
     Route: 042
     Dates: start: 20230203, end: 20230217
  32. OXALIPLATIN [Suspect]
     Active Substance: OXALIPLATIN
     Indication: Colorectal cancer metastatic
     Dosage: INTRAVENOUS DRIP
     Route: 042
     Dates: start: 20211213
  33. OXALIPLATIN [Suspect]
     Active Substance: OXALIPLATIN
     Indication: Colorectal cancer metastatic
     Dosage: INTRAVENOUS DRIP
     Route: 042
     Dates: start: 20220105, end: 20220119
  34. OXALIPLATIN [Suspect]
     Active Substance: OXALIPLATIN
     Indication: Colorectal cancer metastatic
     Dosage: INTRAVENOUS DRIP
     Route: 042
     Dates: start: 20220129, end: 20220212
  35. OXALIPLATIN [Suspect]
     Active Substance: OXALIPLATIN
     Indication: Colorectal cancer metastatic
     Dosage: INTRAVENOUS DRIP
     Route: 042
     Dates: start: 20220218, end: 20220304
  36. OXALIPLATIN [Suspect]
     Active Substance: OXALIPLATIN
     Indication: Colorectal cancer metastatic
     Dosage: INTRAVENOUS DRIP
     Route: 042
     Dates: start: 20220501, end: 20220514
  37. OXALIPLATIN [Suspect]
     Active Substance: OXALIPLATIN
     Indication: Colorectal cancer metastatic
     Dosage: INTRAVENOUS DRIP
     Route: 042
     Dates: start: 20220523, end: 20220607
  38. OXALIPLATIN [Suspect]
     Active Substance: OXALIPLATIN
     Indication: Colorectal cancer metastatic
     Dosage: INTRAVENOUS DRIP
     Route: 042
     Dates: start: 20220630, end: 20220716
  39. OXALIPLATIN [Suspect]
     Active Substance: OXALIPLATIN
     Indication: Colorectal cancer metastatic
     Dosage: INTRAVENOUS DRIP
     Route: 042
     Dates: start: 20220722, end: 20220805

REACTIONS (7)
  - Septic shock [Fatal]
  - Pneumonia [Fatal]
  - Disease progression [Fatal]
  - Hyponatraemia [Recovered/Resolved]
  - Intestinal obstruction [Not Recovered/Not Resolved]
  - Lipase increased [Unknown]
  - Amylase increased [Unknown]
